FAERS Safety Report 5989741-2 (Version None)
Quarter: 2008Q4

REPORT INFORMATION
  Report Type: 
  Country: None (occurrence: None)
  Receive Date: 20081209
  Receipt Date: 20081124
  Transmission Date: 20090506
  Serious: No
  Sender: FDA-Public Use
  Company Number: 2008S1021088

PATIENT

DRUGS (3)
  1. METFORMIN HCL [Suspect]
     Indication: GESTATIONAL DIABETES
     Dosage: TRANSPLACENTAL
     Route: 064
  2. COCAINE [Concomitant]
  3. ALCOHOL [Concomitant]

REACTIONS (5)
  - ALCOHOL USE [None]
  - DRUG ABUSE [None]
  - DRUG EXPOSURE DURING PREGNANCY [None]
  - INTRA-UTERINE DEATH [None]
  - LACTIC ACIDOSIS [None]
